FAERS Safety Report 4807820-X (Version None)
Quarter: 2005Q4

REPORT INFORMATION
  Report Type: 
  Country: None (occurrence: None)
  Receive Date: 20051020
  Receipt Date: 20051007
  Transmission Date: 20060501
  Serious: Yes (Hospitalization, Other)
  Sender: FDA-Public Use
  Company Number: 2005140828

PATIENT
  Sex: Male

DRUGS (1)
  1. GENOTONORM (SOMATROPIN) [Suspect]
     Indication: ILL-DEFINED DISORDER

REACTIONS (2)
  - INTRACRANIAL PRESSURE INCREASED [None]
  - MONOPARESIS [None]
